FAERS Safety Report 4385650-3 (Version None)
Quarter: 2004Q2

REPORT INFORMATION
  Report Type: 
  Country: None (occurrence: None)
  Receive Date: 20040623
  Receipt Date: 20040614
  Transmission Date: 20050107
  Serious: Yes (Life-Threatening)
  Sender: FDA-Public Use
  Company Number: TUK2004A00072

PATIENT
  Age: 75 Year
  Sex: Male

DRUGS (3)
  1. ACTOS [Suspect]
  2. GLICLAZIDE (GLICLAZIDE) [Concomitant]
  3. ASPIRIN [Concomitant]

REACTIONS (1)
  - PANCREATIC CARCINOMA [None]
